FAERS Safety Report 10483338 (Version 2)
Quarter: 2014Q3

REPORT INFORMATION
  Report Type: Spontaneous
  Country: ES (occurrence: ES)
  Receive Date: 20140930
  Receipt Date: 20140930
  Transmission Date: 20150326
  Serious: Yes (Hospitalization, Other)
  Sender: FDA-Public Use
  Company Number: ES-RANBAXY-2013R1-67531

PATIENT
  Age: 72 Year
  Sex: Male

DRUGS (1)
  1. CLARITHROMYCIN. [Suspect]
     Active Substance: CLARITHROMYCIN
     Indication: RESPIRATORY TRACT INFECTION
     Dosage: 1000 MG, DAILY
     Route: 065

REACTIONS (3)
  - Affective disorder [Recovered/Resolved]
  - Suicide attempt [Recovered/Resolved]
  - Depressive symptom [Recovered/Resolved]
